FAERS Safety Report 4959019-4 (Version None)
Quarter: 2006Q1

REPORT INFORMATION
  Report Type: 
  Country: None (occurrence: None)
  Receive Date: 20060328
  Receipt Date: 20060315
  Transmission Date: 20060701
  Serious: Yes (Other)
  Sender: FDA-Public Use
  Company Number: HQWYE154006MAR06

PATIENT
  Age: 46 Year
  Sex: Female

DRUGS (3)
  1. PREMARIN [Suspect]
     Indication: MENOPAUSE
     Dosage: SEE IMAGE
     Route: 048
     Dates: start: 19980101
  2. LAMICTAL [Concomitant]
  3. PRMIDONE (PRIMIDONE) [Concomitant]

REACTIONS (8)
  - COMPLEX PARTIAL SEIZURES [None]
  - CONDITION AGGRAVATED [None]
  - DRUG DOSE OMISSION [None]
  - DRUG EFFECT DECREASED [None]
  - HEART RATE DECREASED [None]
  - LOSS OF CONSCIOUSNESS [None]
  - MENOPAUSAL SYMPTOMS [None]
  - PHARMACEUTICAL PRODUCT COMPLAINT [None]
